FAERS Safety Report 8165340-1 (Version None)
Quarter: 2012Q1

REPORT INFORMATION
  Report Type: 
  Country: None (occurrence: None)
  Receive Date: 20120222
  Receipt Date: 20120222
  Transmission Date: 20120608
  Serious: Yes (Other)
  Sender: FDA-Public Use
  Company Number: None

PATIENT
  Sex: Male
  Weight: 92.9874 kg

DRUGS (15)
  1. NEXIUM [Concomitant]
  2. FOLIC ACID [Concomitant]
  3. CA [Concomitant]
  4. DURAGESIC-100 [Concomitant]
  5. FLOMAX [Concomitant]
  6. ZINC SULFATE [Concomitant]
  7. RECLAST [Suspect]
     Indication: OSTEOPENIA
     Dosage: 1X IV 042
     Route: 042
     Dates: start: 20111019
  8. VITAMIN B-12 [Concomitant]
  9. INDOCIN [Concomitant]
  10. PN VIT [Concomitant]
  11. UNIVASC [Concomitant]
  12. PROZAC [Concomitant]
  13. SYNTHROID [Concomitant]
  14. VITAMIN D [Concomitant]
  15. NORCO [Concomitant]

REACTIONS (26)
  - DYSPHONIA [None]
  - BLOOD GLUCOSE ABNORMAL [None]
  - GLOSSODYNIA [None]
  - SLEEP APNOEA SYNDROME [None]
  - VOMITING [None]
  - ASTHENIA [None]
  - DEPRESSION [None]
  - STOMATITIS [None]
  - ERYTHEMA [None]
  - ARTHRALGIA [None]
  - ABASIA [None]
  - GINGIVAL PAIN [None]
  - VISION BLURRED [None]
  - HEART RATE IRREGULAR [None]
  - PRURITUS [None]
  - MYALGIA [None]
  - CONSTIPATION [None]
  - FATIGUE [None]
  - DYSPNOEA [None]
  - BONE PAIN [None]
  - BLOOD POTASSIUM INCREASED [None]
  - DIZZINESS [None]
  - BALANCE DISORDER [None]
  - WEIGHT INCREASED [None]
  - NAUSEA [None]
  - SOMNOLENCE [None]
